FAERS Safety Report 7877186-X (Version None)
Quarter: 2011Q4

REPORT INFORMATION
  Report Type: 
  Country: None (occurrence: None)
  Receive Date: 20111031
  Receipt Date: 20111025
  Transmission Date: 20120403
  Serious: Yes (Life-Threatening, Hospitalization, Other)
  Sender: FDA-Public Use
  Company Number: US-ROCHE-796287

PATIENT
  Age: 79 Year
  Sex: Female
  Weight: 45.7 kg

DRUGS (3)
  1. PACLITAXEL [Suspect]
     Indication: OVARIAN EPITHELIAL CANCER
     Dosage: OVER 1 HOUR ON DAY 1 , 8  AND 15
     Route: 042
     Dates: start: 20101104, end: 20110310
  2. CARBOPLATIN [Suspect]
     Indication: OVARIAN EPITHELIAL CANCER
     Dosage: 6 AUC IP ON DAY 1
     Route: 033
     Dates: start: 20101104, end: 20110303
  3. AVASTIN [Suspect]
     Indication: OVARIAN EPITHELIAL CANCER
     Dosage: OVER 30 - 90 MINS ON DAY 1,
     Route: 042
     Dates: start: 20101104, end: 20110616

REACTIONS (6)
  - ATAXIA [None]
  - NYSTAGMUS [None]
  - CENTRAL NERVOUS SYSTEM NECROSIS [None]
  - APHASIA [None]
  - NAUSEA [None]
  - TREMOR [None]
